FAERS Safety Report 14286240 (Version 2)
Quarter: 2018Q1

REPORT INFORMATION
  Report Type: Report from Study
  Country: US (occurrence: US)
  Receive Date: 20171214
  Receipt Date: 20180103
  Transmission Date: 20180509
  Serious: Yes (Hospitalization, Other)
  Sender: FDA-Public Use
  Company Number: US-TEVA-814104USA

PATIENT
  Age: 78 Year
  Sex: Male

DRUGS (13)
  1. ACIDOPHILUS [Concomitant]
     Active Substance: LACTOBACILLUS ACIDOPHILUS
  2. AUSTEDO [Suspect]
     Active Substance: DEUTETRABENAZINE
     Indication: DYSKINESIA
     Route: 065
     Dates: start: 20170923, end: 20170928
  3. AUSTEDO [Suspect]
     Active Substance: DEUTETRABENAZINE
     Indication: CHOREA
     Dosage: 18 MILLIGRAM DAILY;
     Route: 065
     Dates: start: 2017
  4. ELIQUIS [Concomitant]
     Active Substance: APIXABAN
  5. TAMSULOSIN [Concomitant]
     Active Substance: TAMSULOSIN
  6. METOPROLOL. [Concomitant]
     Active Substance: METOPROLOL
  7. FAMOTIDINE. [Concomitant]
     Active Substance: FAMOTIDINE
  8. SODIUM CHLORIDE. [Concomitant]
     Active Substance: SODIUM CHLORIDE
  9. AUSTEDO [Suspect]
     Active Substance: DEUTETRABENAZINE
     Dosage: 24 MILLIGRAM DAILY; WEEK 4 TITRATION
     Route: 065
     Dates: start: 201710
  10. SPIRIVA [Concomitant]
     Active Substance: TIOTROPIUM BROMIDE MONOHYDRATE
  11. SYMBICORT [Concomitant]
     Active Substance: BUDESONIDE\FORMOTEROL FUMARATE DIHYDRATE
  12. AUSTEDO [Suspect]
     Active Substance: DEUTETRABENAZINE
     Dosage: 48 MILLIGRAM DAILY; TWO 12 MG TABLETS TWICE DAILY
     Route: 065
  13. THIAMINE. [Concomitant]
     Active Substance: THIAMINE

REACTIONS (10)
  - Confusional state [Recovered/Resolved]
  - Oxygen saturation decreased [Recovered/Resolved]
  - Blood sodium decreased [Recovered/Resolved]
  - Movement disorder [Recovered/Resolved]
  - Cerebrovascular accident [Recovering/Resolving]
  - Asthenia [Not Recovered/Not Resolved]
  - Hemiparesis [Recovering/Resolving]
  - Product use in unapproved indication [Unknown]
  - Facial paralysis [Recovering/Resolving]
  - Drooling [Unknown]

NARRATIVE: CASE EVENT DATE: 20170928
